FAERS Safety Report 18879296 (Version 1)
Quarter: 2021Q1

REPORT INFORMATION
  Report Type: Spontaneous
  Country: US (occurrence: US)
  Receive Date: 20210211
  Receipt Date: 20210211
  Transmission Date: 20210420
  Serious: Yes (Hospitalization)
  Sender: FDA-Public Use
  Company Number: None

PATIENT
  Sex: Female

DRUGS (1)
  1. UDENYCA [Suspect]
     Active Substance: PEGFILGRASTIM-CBQV
     Indication: SOFT TISSUE SARCOMA
     Dosage: ?          OTHER FREQUENCY:EVERY THREE WEEKS;?
     Route: 058
     Dates: start: 20210106

REACTIONS (1)
  - Hospitalisation [None]
